FAERS Safety Report 23685001 (Version 2)
Quarter: 2025Q1

REPORT INFORMATION
  Report Type: Report from Study
  Country: JP (occurrence: JP)
  Receive Date: 20240328
  Receipt Date: 20250325
  Transmission Date: 20250408
  Serious: Yes (Hospitalization, Other)
  Sender: VIIV
  Company Number: JP-ViiV Healthcare Limited-JP2024JPN038747

PATIENT

DRUGS (10)
  1. DOLUTEGRAVIR SODIUM\LAMIVUDINE [Suspect]
     Active Substance: DOLUTEGRAVIR SODIUM\LAMIVUDINE
     Indication: HIV infection
     Dosage: 1 DF, QD
     Dates: start: 20230215
  2. ESZOPICLONE [Concomitant]
     Active Substance: ESZOPICLONE
  3. DAYVIGO [Concomitant]
     Active Substance: LEMBOREXANT
  4. TRAZODONE [Concomitant]
     Active Substance: TRAZODONE HYDROCHLORIDE
  5. CLONAZEPAM [Concomitant]
     Active Substance: CLONAZEPAM
  6. LAMOTRIGINE [Concomitant]
     Active Substance: LAMOTRIGINE
  7. LEVETIRACETAM [Concomitant]
     Active Substance: LEVETIRACETAM
  8. PRAMIPEXOLE [Concomitant]
     Active Substance: PRAMIPEXOLE
  9. BLONANSERIN [Concomitant]
     Active Substance: BLONANSERIN
  10. ALLELOCK [Concomitant]
     Active Substance: OLOPATADINE HYDROCHLORIDE
     Dates: end: 20240222

REACTIONS (2)
  - Pneumonia [Recovering/Resolving]
  - Schizophrenia [Recovered/Resolved]

NARRATIVE: CASE EVENT DATE: 20230919
